FAERS Safety Report 25530739 (Version 2)
Quarter: 2025Q4

REPORT INFORMATION
  Report Type: Spontaneous
  Country: US (occurrence: US)
  Receive Date: 20250708
  Receipt Date: 20251009
  Transmission Date: 20260117
  Serious: No
  Sender: BRISTOL-MYERS SQUIBB COMPANY
  Company Number: US-BRISTOL-MYERS SQUIBB COMPANY-2025-096131

PATIENT
  Age: 52 Year
  Sex: Female

DRUGS (2)
  1. ORENCIA [Suspect]
     Active Substance: ABATACEPT
     Indication: Rheumatoid arthritis
     Dosage: EVERY 4 WEEKS
     Dates: start: 202502
  2. ORENCIA [Suspect]
     Active Substance: ABATACEPT
     Dosage: EVERY 4 WEEKS
     Dates: start: 202502

REACTIONS (3)
  - Joint stiffness [Recovered/Resolved]
  - Joint swelling [Recovered/Resolved]
  - Arthralgia [Recovered/Resolved]
